FAERS Safety Report 6464963-5 (Version None)
Quarter: 2009Q4

REPORT INFORMATION
  Report Type: 
  Country: None (occurrence: None)
  Receive Date: 20091201
  Receipt Date: 20091023
  Transmission Date: 20100525
  Serious: No
  Sender: FDA-Public Use
  Company Number: US-BAYER-200914521BCC

PATIENT
  Age: 68 Year
  Sex: Female
  Weight: 59 kg

DRUGS (5)
  1. ALEVE [Suspect]
     Indication: HEADACHE
     Dosage: TOTAL DAILY DOSE: 440 MG  UNIT DOSE: 220 MG
     Route: 048
     Dates: start: 20090914
  2. ASPIRIN [Concomitant]
     Dosage: TOTAL DAILY DOSE: 81 MG  UNIT DOSE: 81 MG
     Route: 065
  3. CLARINEX [Concomitant]
     Route: 065
  4. TOPROL-XL [Concomitant]
     Indication: ATRIAL FIBRILLATION
     Route: 065
  5. TYLENOL (CAPLET) [Concomitant]
     Route: 065

REACTIONS (1)
  - PARAESTHESIA [None]
